FAERS Safety Report 21905557 (Version 1)
Quarter: 2023Q1

REPORT INFORMATION
  Report Type: Spontaneous
  Country: US (occurrence: US)
  Receive Date: 20230124
  Receipt Date: 20230124
  Transmission Date: 20230418
  Serious: No
  Sender: FDA-Public Use
  Company Number: US-MYLANLABS-2023M1003557

PATIENT
  Age: 56 Year

DRUGS (2)
  1. EFFEXOR XR [Suspect]
     Active Substance: VENLAFAXINE HYDROCHLORIDE
     Indication: Hot flush
     Dosage: UNK (PILL, YEARS AGO)
     Route: 065
  2. LEVOTHYROXINE [Concomitant]
     Active Substance: LEVOTHYROXINE
     Indication: Thyroid disorder
     Dosage: UNK (PILL, STILL TAKING)
     Route: 065

REACTIONS (3)
  - Cardiac valve disease [Unknown]
  - Aortic aneurysm [Unknown]
  - Off label use [Unknown]

NARRATIVE: CASE EVENT DATE: 20220629
